FAERS Safety Report 23856741 (Version 1)
Quarter: 2024Q2

REPORT INFORMATION
  Report Type: Spontaneous
  Country: FR (occurrence: FR)
  Receive Date: 20240515
  Receipt Date: 20240515
  Transmission Date: 20240716
  Serious: Yes (Hospitalization)
  Sender: FDA-Public Use
  Company Number: FR-SUN PHARMACEUTICAL INDUSTRIES LTD-2024RR-446085

PATIENT
  Age: 82 Year
  Sex: Female
  Weight: 73 kg

DRUGS (3)
  1. PREGABALIN [Suspect]
     Active Substance: PREGABALIN
     Indication: Sciatica
     Dosage: 300 MILLIGRAM, DAILY
     Route: 048
     Dates: end: 20230913
  2. NITROFURANTOIN [Suspect]
     Active Substance: NITROFURANTOIN
     Indication: Cystitis
     Dosage: 200 MILLIGRAM, DAILY
     Route: 048
     Dates: start: 20230911, end: 20230913
  3. ACETAMINOPHEN [Concomitant]
     Active Substance: ACETAMINOPHEN
     Indication: Product used for unknown indication
     Dosage: UNK
     Route: 065

REACTIONS (1)
  - Hepatic steatosis [Recovering/Resolving]

NARRATIVE: CASE EVENT DATE: 20230911
